FAERS Safety Report 6867351-2 (Version None)
Quarter: 2010Q3

REPORT INFORMATION
  Report Type: 
  Country: None (occurrence: None)
  Receive Date: 20100722
  Receipt Date: 20100713
  Transmission Date: 20110219
  Serious: Yes (Hospitalization)
  Sender: FDA-Public Use
  Company Number: DE-SANOFI-AVENTIS-2010SA040951

PATIENT
  Age: 65 Year
  Sex: Female
  Weight: 79 kg

DRUGS (5)
  1. ELOXATIN [Suspect]
     Indication: RECTAL CANCER
     Route: 041
     Dates: start: 20100520, end: 20100520
  2. ELOXATIN [Suspect]
     Route: 041
     Dates: start: 20100618, end: 20100618
  3. XELODA [Suspect]
     Indication: RECTAL CANCER
     Route: 048
     Dates: start: 20100520, end: 20100630
  4. KEVATRIL [Concomitant]
     Indication: PROPHYLAXIS
     Route: 042
     Dates: start: 20100520, end: 20100618
  5. DEXAMETHASONE [Concomitant]
     Indication: PROPHYLAXIS
     Route: 042
     Dates: start: 20100520, end: 20100618

REACTIONS (2)
  - DEEP VEIN THROMBOSIS [None]
  - FACTOR V LEIDEN MUTATION [None]
